FAERS Safety Report 23240125 (Version 1)
Quarter: 2023Q4

REPORT INFORMATION
  Report Type: Spontaneous
  Country: KR (occurrence: KR)
  Receive Date: 20231129
  Receipt Date: 20231129
  Transmission Date: 20240110
  Serious: Yes (Hospitalization, Other)
  Sender: FDA-Public Use
  Company Number: None

PATIENT
  Age: 84 Year
  Sex: Male

DRUGS (7)
  1. PLAVIX [Suspect]
     Active Substance: CLOPIDOGREL BISULFATE
     Dosage: 75 MG
     Route: 048
     Dates: start: 20190615, end: 20230617
  2. ASPIRIN [Suspect]
     Active Substance: ASPIRIN
     Indication: Benign prostatic hyperplasia
     Dosage: 100 MG
     Route: 048
     Dates: start: 20190615
  3. CILOSTAZOL [Suspect]
     Active Substance: CILOSTAZOL
     Indication: Pain
     Dosage: 200 MG
     Route: 048
     Dates: start: 20190615, end: 20190617
  4. FINASTERIDE [Concomitant]
     Active Substance: FINASTERIDE
     Indication: Benign prostatic hyperplasia
     Dosage: UNK
  5. TAMSULOSIN HYDROCHLORIDE [Concomitant]
     Active Substance: TAMSULOSIN HYDROCHLORIDE
     Indication: Acute myocardial infarction
     Dosage: UNK
  6. MIRABEGRON [Concomitant]
     Active Substance: MIRABEGRON
     Indication: Acute myocardial infarction
     Dosage: UNK
  7. ACECLOFENAC [Concomitant]
     Active Substance: ACECLOFENAC
     Indication: Acute myocardial infarction
     Dosage: 100 MG

REACTIONS (2)
  - Cardiac failure [Recovering/Resolving]
  - Pericarditis [Recovered/Resolved]

NARRATIVE: CASE EVENT DATE: 20190617
